FAERS Safety Report 14948781 (Version 1)
Quarter: 2018Q2

REPORT INFORMATION
  Report Type: Spontaneous
  Country: GB (occurrence: GB)
  Receive Date: 20180529
  Receipt Date: 20180529
  Transmission Date: 20180711
  Serious: Yes (Death, Other)
  Sender: FDA-Public Use
  Company Number: GB-SHIRE-GB201819775

PATIENT

DRUGS (1)
  1. SUBCUVIA [Suspect]
     Active Substance: HUMAN IMMUNOGLOBULIN G
     Indication: CYSTIC FIBROSIS
     Dosage: 1.6 G, 1X/WEEK
     Route: 058
     Dates: start: 20160512

REACTIONS (1)
  - Respiratory failure [Fatal]
